FAERS Safety Report 19661231 (Version 3)
Quarter: 2021Q4

REPORT INFORMATION
  Report Type: Spontaneous
  Country: CA (occurrence: CA)
  Receive Date: 20210805
  Receipt Date: 20211201
  Transmission Date: 20220303
  Serious: Yes (Other)
  Sender: FDA-Public Use
  Company Number: CA-PFIZER INC-202100985991

PATIENT
  Age: 77 Year
  Sex: Female

DRUGS (6)
  1. METHOTREXATE SODIUM [Suspect]
     Active Substance: METHOTREXATE SODIUM
     Dosage: 15 MG
     Route: 065
  2. METHOTREXATE SODIUM [Suspect]
     Active Substance: METHOTREXATE SODIUM
     Dosage: 7.5 MG, UNK
     Route: 065
  3. METHOTREXATE SODIUM [Suspect]
     Active Substance: METHOTREXATE SODIUM
     Dosage: 1 DF, UNK START DATE15 MG TO DECREASE TO 7.5 MG
     Route: 065
     Dates: start: 2003, end: 2021
  4. SULFASALAZINE [Suspect]
     Active Substance: SULFASALAZINE
     Dosage: 1.5 G
     Route: 065
     Dates: start: 2009, end: 2021
  5. CELEBREX [Suspect]
     Active Substance: CELECOXIB
     Dosage: 200 MG, 2X/DAY
     Route: 048
     Dates: start: 2005
  6. CELEBREX [Suspect]
     Active Substance: CELECOXIB
     Dosage: 1 DF, 200 MG PO BID
     Route: 048
     Dates: start: 2005, end: 2021

REACTIONS (4)
  - Hepatic cirrhosis [Unknown]
  - Drug ineffective [Unknown]
  - C-reactive protein increased [Unknown]
  - Drug intolerance [Unknown]

NARRATIVE: CASE EVENT DATE: 20210101
